FAERS Safety Report 9074628 (Version 1)
Quarter: 2013Q1

REPORT INFORMATION
  Report Type: Spontaneous
  Country: US (occurrence: US)
  Receive Date: 20130128
  Receipt Date: 20130128
  Transmission Date: 20140127
  Serious: No
  Sender: FDA-Public Use
  Company Number: US-ABBOTT-12P-163-0903086-00

PATIENT
  Age: 62 None
  Sex: Female
  Weight: 87.17 kg

DRUGS (11)
  1. HUMIRA 40 MG/0.8 ML PEN [Suspect]
     Indication: RHEUMATOID ARTHRITIS
     Route: 058
     Dates: start: 20120110, end: 20120215
  2. NEXIUM [Concomitant]
     Indication: GASTROOESOPHAGEAL REFLUX DISEASE
     Dosage: 40MG DAILY
  3. CRESTOR [Concomitant]
     Indication: BLOOD CHOLESTEROL INCREASED
     Dosage: 10MG DAILY
  4. HYDROCHLOROTHIAZID [Concomitant]
     Indication: FLUID RETENTION
     Dosage: 37.5MG DAILY
  5. METFORMIN [Concomitant]
     Indication: DIABETES MELLITUS
     Dosage: 500MG DAILY
  6. IRON [Concomitant]
     Indication: BLOOD IRON DECREASED
     Dosage: DAILY
  7. CYMBALTA [Concomitant]
     Indication: DEPRESSION
     Dosage: 90MG DAILY
  8. PLAVIX [Concomitant]
     Indication: ATRIAL FIBRILLATION
     Dosage: 75MG DAILY
  9. TYLENOL [Concomitant]
     Indication: PAIN
     Dosage: TWO TABS IN MORNING
     Dates: start: 2009
  10. TYLENOL 3 [Concomitant]
     Indication: PAIN
     Dosage: TWO TABS AT NIGHT
     Dates: start: 2010
  11. VITAMIN D [Concomitant]
     Indication: VITAMIN SUPPLEMENTATION

REACTIONS (7)
  - Paraesthesia [Recovered/Resolved]
  - Chills [Recovered/Resolved]
  - Tinnitus [Recovered/Resolved]
  - Dizziness [Recovered/Resolved]
  - Pallor [Recovered/Resolved]
  - Headache [Recovered/Resolved]
  - Anxiety [Unknown]
